FAERS Safety Report 11910920 (Version 1)
Quarter: 2016Q1

REPORT INFORMATION
  Report Type: Spontaneous
  Country: US (occurrence: US)
  Receive Date: 20160112
  Receipt Date: 20160112
  Transmission Date: 20160526
  Serious: Yes (Other)
  Sender: FDA-Public Use
  Company Number: US-PFIZER INC-2016006435

PATIENT
  Sex: Female

DRUGS (1)
  1. LYRICA [Suspect]
     Active Substance: PREGABALIN
     Dosage: UNK

REACTIONS (8)
  - Nasopharyngitis [Unknown]
  - Atypical pneumonia [Unknown]
  - Pneumonia [Unknown]
  - Vision blurred [Unknown]
  - Asthma [Unknown]
  - Expired product administered [Unknown]
  - Emphysema [Unknown]
  - Bronchitis [Unknown]
